FAERS Safety Report 25140809 (Version 2)
Quarter: 2025Q2

REPORT INFORMATION
  Report Type: Spontaneous
  Country: US (occurrence: US)
  Receive Date: 20250331
  Receipt Date: 20250404
  Transmission Date: 20250717
  Serious: No
  Sender: BAYER
  Company Number: US-BAYER-2025A038870

PATIENT
  Sex: Female

DRUGS (1)
  1. CLIMARA PRO [Suspect]
     Active Substance: ESTRADIOL\LEVONORGESTREL
     Route: 062

REACTIONS (2)
  - Device breakage [None]
  - Incorrect dose administered [None]
